FAERS Safety Report 6014019-0 (Version None)
Quarter: 2008Q4

REPORT INFORMATION
  Report Type: 
  Country: None (occurrence: None)
  Receive Date: 20081219
  Receipt Date: 20080207
  Transmission Date: 20090506
  Serious: No
  Sender: FDA-Public Use
  Company Number: A0669786A

PATIENT
  Age: 62 Year
  Sex: Male

DRUGS (1)
  1. AVODART [Suspect]
     Indication: BENIGN PROSTATIC HYPERPLASIA
     Dosage: .5MG ALTERNATE DAYS
     Route: 048
     Dates: start: 20070301

REACTIONS (2)
  - DRUG INEFFECTIVE [None]
  - PRODUCT QUALITY ISSUE [None]
